FAERS Safety Report 25417231 (Version 1)
Quarter: 2025Q2

REPORT INFORMATION
  Report Type: Spontaneous
  Country: HK (occurrence: HK)
  Receive Date: 20250610
  Receipt Date: 20250610
  Transmission Date: 20250717
  Serious: Yes (Other)
  Sender: ROCHE
  Company Number: HK-ROCHE-10000305801

PATIENT
  Sex: Male

DRUGS (1)
  1. ENTRECTINIB [Suspect]
     Active Substance: ENTRECTINIB
     Indication: Congenital fibrosarcoma
     Route: 065
     Dates: start: 202405

REACTIONS (3)
  - Disease progression [Unknown]
  - Metastases to lung [Unknown]
  - Drug resistance [Unknown]

NARRATIVE: CASE EVENT DATE: 20250101
